FAERS Safety Report 12857399 (Version 1)
Quarter: 2016Q4

REPORT INFORMATION
  Report Type: Spontaneous
  Country: FR (occurrence: FR)
  Receive Date: 20161018
  Receipt Date: 20161018
  Transmission Date: 20170207
  Serious: Yes (Hospitalization)
  Sender: FDA-Public Use
  Company Number: FR-PFIZER INC-2016469023

PATIENT
  Age: 54 Year
  Sex: Male

DRUGS (10)
  1. FLUOROURACILE ACCORD [Suspect]
     Active Substance: FLUOROURACIL
     Indication: SQUAMOUS CELL CARCINOMA OF THE TONGUE
     Dosage: 1840 MG, CYCLIC
     Route: 042
     Dates: start: 20160808, end: 20160902
  2. AZANTAC [Concomitant]
     Active Substance: RANITIDINE HYDROCHLORIDE
     Dosage: 150 MG, CYCLIC
     Route: 042
     Dates: start: 20160808, end: 20160830
  3. CARBOPLATINE HOSPIRA [Suspect]
     Active Substance: CARBOPLATIN
     Indication: SQUAMOUS CELL CARCINOMA OF THE TONGUE
     Dosage: 605 MG, CYCLIC
     Route: 042
     Dates: start: 20160808, end: 20160830
  4. ORAMORPH [Concomitant]
     Active Substance: MORPHINE SULFATE
     Dosage: UNK
     Dates: end: 20160906
  5. ONDANSETRON ACCORD [Concomitant]
     Active Substance: ONDANSETRON
     Indication: PREMEDICATION
     Dosage: 8 MG, CYCLIC
     Route: 042
     Dates: start: 20160808, end: 20160830
  6. POLARAMINE [Concomitant]
     Active Substance: DEXCHLORPHENIRAMINE MALEATE
     Indication: PREMEDICATION
     Dosage: 10 ML, CYCLIC
     Route: 042
     Dates: start: 20160808, end: 20160830
  7. ERBITUX [Suspect]
     Active Substance: CETUXIMAB
     Indication: SQUAMOUS CELL CARCINOMA OF THE TONGUE
     Dosage: 455 MG, WEEKLY (3 TIMES PER CYCLE)
     Route: 042
     Dates: start: 20160808, end: 20160830
  8. METHYLPREDNISOLONE MYLAN /00049602/ [Concomitant]
     Active Substance: METHYLPREDNISOLONE SODIUM SUCCINATE
     Dosage: 73 MG, CYCLIC
     Route: 042
     Dates: start: 20160808, end: 20160902
  9. DEPAKINE /00228502/ [Concomitant]
     Active Substance: VALPROATE SODIUM
  10. DUROGESIC [Concomitant]
     Active Substance: FENTANYL
     Dosage: UNK
     Dates: end: 20160906

REACTIONS (5)
  - Skin fissures [Recovering/Resolving]
  - Dehydration [Unknown]
  - Asterixis [Recovered/Resolved]
  - Stomatitis [Recovering/Resolving]
  - Somnolence [Unknown]

NARRATIVE: CASE EVENT DATE: 20160902
